FAERS Safety Report 9706642 (Version 1)
Quarter: 2013Q4

REPORT INFORMATION
  Report Type: Report from Study
  Country: US (occurrence: US)
  Receive Date: 20131125
  Receipt Date: 20131125
  Transmission Date: 20140711
  Serious: Yes (Hospitalization, Other)
  Sender: FDA-Public Use
  Company Number: US-JNJFOC-20131108611

PATIENT
  Sex: Female
  Weight: 80.29 kg

DRUGS (5)
  1. XARELTO [Suspect]
     Indication: ANTICOAGULANT THERAPY
     Route: 048
     Dates: start: 201305
  2. PROPAFENONE [Concomitant]
     Indication: ARRHYTHMIA
     Route: 065
     Dates: start: 2008
  3. PANTOPRAZOLE [Concomitant]
     Indication: GASTROOESOPHAGEAL REFLUX DISEASE
     Route: 048
     Dates: start: 2008
  4. ALPRAZOLAM [Concomitant]
     Indication: ARRHYTHMIA
     Route: 048
     Dates: start: 2003
  5. VITAMIN D [Concomitant]
     Indication: VITAMIN D DEFICIENCY
     Route: 048

REACTIONS (5)
  - Urinary tract infection [Not Recovered/Not Resolved]
  - Arrhythmia [Unknown]
  - Heart rate increased [Unknown]
  - Dyspnoea [Unknown]
  - Oral fungal infection [Not Recovered/Not Resolved]
